FAERS Safety Report 5383640-5 (Version None)
Quarter: 2007Q3

REPORT INFORMATION
  Report Type: 
  Country: None (occurrence: None)
  Receive Date: 20070706
  Receipt Date: 20070625
  Transmission Date: 20080115
  Serious: Yes (Hospitalization)
  Sender: FDA-Public Use
  Company Number: 2007BI011978

PATIENT
  Age: 44 Year
  Sex: Female

DRUGS (11)
  1. AVONEX [Suspect]
     Indication: MULTIPLE SCLEROSIS
     Dosage: 30 UG; QW; IM
     Route: 030
     Dates: start: 20031203
  2. LEXAPRO [Concomitant]
  3. FLEXERIL [Concomitant]
  4. KLONOPIN [Concomitant]
  5. ATIVAN [Concomitant]
  6. MECLIZINE [Concomitant]
  7. TOPAMAX [Concomitant]
  8. MIDRIN [Concomitant]
  9. PHENERGAN HCL [Concomitant]
  10. TYLENOL W/ CODEINE [Concomitant]
  11. SKELAXIN [Concomitant]

REACTIONS (1)
  - INTERVERTEBRAL DISC PROTRUSION [None]
